FAERS Safety Report 4446790-3 (Version None)
Quarter: 2004Q3

REPORT INFORMATION
  Report Type: 
  Country: None (occurrence: None)
  Receive Date: 20040910
  Receipt Date: 20040823
  Transmission Date: 20050211
  Serious: Yes (Life-Threatening, Hospitalization, Disabling)
  Sender: FDA-Public Use
  Company Number: DSA_70342_2004

PATIENT
  Age: 61 Year
  Sex: Female
  Weight: 81.6475 kg

DRUGS (8)
  1. DARVOCET-N 100 [Suspect]
     Indication: ARTHRALGIA
     Dosage: 6 TAB QDAY/A FEW YEARS
  2. DARVOCET-N 100 [Suspect]
     Indication: ARTHRALGIA
     Dosage: 1 TAB Q6HR PO
     Route: 048
     Dates: start: 20040501
  3. DARVOCET-N 100 [Suspect]
     Indication: ARTHRALGIA
     Dosage: 1 TAB Q6HR PO
     Route: 048
     Dates: start: 20030301
  4. FORTEO [Suspect]
     Indication: OSTEOPOROSIS
     Dates: start: 20040617
  5. NEXIUM [Concomitant]
  6. CELEBREX [Concomitant]
  7. PLAQUENIL [Concomitant]
  8. PLAVIX [Concomitant]

REACTIONS (10)
  - ABDOMINAL PAIN UPPER [None]
  - BACTERIAL INFECTION [None]
  - COMPUTERISED TOMOGRAM ABNORMAL [None]
  - CONDITION AGGRAVATED [None]
  - GASTRIC INFECTION [None]
  - LARGE INTESTINAL ULCER [None]
  - LARGE INTESTINAL ULCER HAEMORRHAGE [None]
  - OVERGROWTH BACTERIAL [None]
  - PERFORATED ULCER [None]
  - POST PROCEDURAL HAEMATOMA [None]
